FAERS Safety Report 4988377-X (Version None)
Quarter: 2006Q2

REPORT INFORMATION
  Report Type: 
  Country: None (occurrence: None)
  Receive Date: 20060502
  Receipt Date: 20060411
  Transmission Date: 20061013
  Serious: Yes (Death)
  Sender: FDA-Public Use
  Company Number: KR-JNJFOC-20060403909

PATIENT
  Sex: Male
  Weight: 54 kg

DRUGS (5)
  1. REMINYL [Suspect]
     Route: 048
  2. REMINYL [Suspect]
     Indication: DEMENTIA ALZHEIMER'S TYPE
     Route: 048
  3. RISPERIDONE [Concomitant]
     Indication: DEMENTIA
  4. SEROQUEL [Concomitant]
     Indication: DEMENTIA
  5. STILNOX [Concomitant]

REACTIONS (2)
  - PNEUMONIA [None]
  - RESPIRATORY ARREST [None]
